FAERS Safety Report 19891266 (Version 1)
Quarter: 2021Q3

REPORT INFORMATION
  Report Type: Other
  Country: FR (occurrence: FR)
  Receive Date: 20210928
  Receipt Date: 20210928
  Transmission Date: 20211014
  Serious: Yes (Hospitalization, Other)
  Sender: FDA-Public Use
  Company Number: FR-ASTELLAS-2021US035905

PATIENT
  Age: 38 Year
  Sex: Female

DRUGS (4)
  1. PROGRAF [Suspect]
     Active Substance: TACROLIMUS
     Indication: HEART TRANSPLANT
     Dosage: 5.5 MG, DAILY
     Route: 048
     Dates: start: 2009, end: 20210830
  2. LANSOPRAZOLE MYLAN [Interacting]
     Active Substance: LANSOPRAZOLE
     Indication: PROPHYLAXIS AGAINST GASTROINTESTINAL ULCER
     Route: 048
     Dates: start: 20210827, end: 20210831
  3. CERTICAN [Interacting]
     Active Substance: EVEROLIMUS
     Indication: HEART TRANSPLANT
     Route: 048
     Dates: start: 2009, end: 20210830
  4. CASIRIVIMAB;IMDEVIMAB [Interacting]
     Active Substance: CASIRIVIMAB\IMDEVIMAB
     Indication: COVID-19 TREATMENT
     Dosage: 1,200 MG CASIRIVIMAB AND 1,200 MG IMDEVIMAB, TOTAL DOSE
     Route: 041
     Dates: start: 20210827, end: 20210827

REACTIONS (4)
  - Immunosuppressant drug level increased [Recovered/Resolved]
  - Drug interaction [Recovered/Resolved]
  - Overdose [Recovered/Resolved]
  - Renal failure [Recovered/Resolved]

NARRATIVE: CASE EVENT DATE: 20210827
